FAERS Safety Report 7204390-6 (Version None)
Quarter: 2010Q4

REPORT INFORMATION
  Report Type: 
  Country: None (occurrence: None)
  Receive Date: 20101220
  Receipt Date: 20101203
  Transmission Date: 20110411
  Serious: Yes (Other)
  Sender: FDA-Public Use
  Company Number: AUR-APL-2010-03129

PATIENT
  Age: 33 Year
  Sex: Female

DRUGS (1)
  1. PAROXETINE HCL [Suspect]
     Indication: PREMENSTRUAL SYNDROME
     Dosage: 20MG - DAILY

REACTIONS (1)
  - RESTLESS LEGS SYNDROME [None]
